FAERS Safety Report 4917892-X (Version None)
Quarter: 2006Q1

REPORT INFORMATION
  Report Type: 
  Country: None (occurrence: None)
  Receive Date: 20060215
  Receipt Date: 20060202
  Transmission Date: 20060701
  Serious: Yes (Hospitalization)
  Sender: FDA-Public Use
  Company Number: 2006018651

PATIENT
  Age: 31 Year
  Sex: Male
  Weight: 46 kg

DRUGS (16)
  1. SOLU-MEDROL [Suspect]
     Indication: PNEUMOCYSTIS JIROVECI INFECTION
     Dosage: 125 MG (125 MG, 1 IN 1 D), INTRAVENOUS
     Route: 042
     Dates: start: 20040105, end: 20040110
  2. PREDNISOLONE [Suspect]
     Indication: INTERSTITIAL LUNG DISEASE
     Dosage: 30 MG (30 MG, 1 IN 1 D), INTRAVENOUS
     Route: 042
     Dates: start: 20040111, end: 20040113
  3. RETROVIR [Concomitant]
  4. EPIVIR [Concomitant]
  5. VIRACEPT [Concomitant]
  6. FUNGIZONE [Concomitant]
  7. AMOXICILLIN [Concomitant]
  8. SULFAMETHOXAZOLE + TRIMETHOPRIM [Concomitant]
  9. TATHION (GLUTATHIONE) [Concomitant]
  10. NICHOLIN (CITICOLINE) [Concomitant]
  11. FUTHAN (NAFAMOSTAT MESILATE) [Concomitant]
  12. BENAMBAX (PENTAMIDINE) [Concomitant]
  13. TARGOCID [Concomitant]
  14. GANCICLOVIR SODIUM [Concomitant]
  15. CARBENIN (BETAMIPRON, PANIPENEM) [Concomitant]
  16. VANCOMYCIN HYDROCHLORIDE [Concomitant]

REACTIONS (7)
  - CYTOMEGALOVIRUS ENTEROCOLITIS [None]
  - CYTOMEGALOVIRUS TEST POSITIVE [None]
  - FLANK PAIN [None]
  - INTERSTITIAL LUNG DISEASE [None]
  - LARGE INTESTINE PERFORATION [None]
  - PERITONITIS [None]
  - STAPHYLOCOCCAL INFECTION [None]
